FAERS Safety Report 5117074-5 (Version None)
Quarter: 2006Q3

REPORT INFORMATION
  Report Type: 
  Country: None (occurrence: None)
  Receive Date: 20060925
  Receipt Date: 20060912
  Transmission Date: 20061208
  Serious: Yes (Death)
  Sender: FDA-Public Use
  Company Number: 2006096755

PATIENT
  Age: 73 Year
  Sex: Female

DRUGS (6)
  1. ZYVOX [Suspect]
     Indication: STAPHYLOCOCCAL INFECTION
     Dosage: 1200 MG (2 IN 1 D), INTRAVENOUS
     Route: 042
     Dates: start: 20060512, end: 20060603
  2. PASIL (PAZUFLOXACIN MESILATE) [Concomitant]
  3. MICAFUNGIN (MICAFUNGIN) [Concomitant]
  4. TARGOCID [Concomitant]
  5. MEROPEN (MEROPENEM) [Concomitant]
  6. ALL OTHER THERAPEUTIC PRODUCTS (ALL OTHER THERAPEUTIC PRODUCTS) [Concomitant]

REACTIONS (2)
  - PLATELET COUNT DECREASED [None]
  - SEPTIC SHOCK [None]
